FAERS Safety Report 21868150 (Version 1)
Quarter: 2023Q1

REPORT INFORMATION
  Report Type: Report from Study
  Country: UY (occurrence: UY)
  Receive Date: 20230116
  Receipt Date: 20230116
  Transmission Date: 20230418
  Serious: Yes (Hospitalization, Other)
  Sender: FDA-Public Use
  Company Number: UY-ABBVIE-4270810

PATIENT
  Age: 28 Year
  Sex: Female

DRUGS (1)
  1. HUMIRA [Suspect]
     Active Substance: ADALIMUMAB
     Indication: Rheumatoid arthritis
     Dosage: FORM  STRENGTH:40 MG
     Route: 058
     Dates: start: 20210906

REACTIONS (5)
  - Pyoderma gangrenosum [Not Recovered/Not Resolved]
  - Wound [Unknown]
  - Inflammation [Unknown]
  - Wound complication [Unknown]
  - Wound infection [Unknown]

NARRATIVE: CASE EVENT DATE: 20221201
